FAERS Safety Report 24803515 (Version 1)
Quarter: 2025Q1

REPORT INFORMATION
  Report Type: Spontaneous
  Country: ES (occurrence: ES)
  Receive Date: 20250103
  Receipt Date: 20250103
  Transmission Date: 20250408
  Serious: Yes (Other)
  Sender: TEVA
  Company Number: None

PATIENT
  Age: 84 Year
  Sex: Female

DRUGS (6)
  1. LEVOFLOXACIN [Suspect]
     Active Substance: LEVOFLOXACIN
     Indication: Postoperative wound infection
     Dosage: LEVOFLOXACIN (2791A)
     Route: 048
     Dates: start: 20230616, end: 20230707
  2. OSTEOPOR [Concomitant]
     Indication: Product used for unknown indication
     Dosage: 2 TABLETS OF 830 MG EVERY 12 HOURS; FILM-COATED TABLETS 40 TABLETS
     Route: 048
     Dates: start: 20120118
  3. NOLOTIL [Concomitant]
     Indication: Product used for unknown indication
     Dosage: 20 CAPSULES
     Route: 048
     Dates: start: 20170220
  4. PANTOPRAZOL CINFA [Concomitant]
     Indication: Product used for unknown indication
     Dosage: GASTRORE-RESISTANT TABLETS EFG, 28 TABLETS (BOTTLE)
     Route: 048
     Dates: start: 20160621
  5. ACETAMINOPHEN [Concomitant]
     Active Substance: ACETAMINOPHEN
     Indication: Product used for unknown indication
     Dosage: EFG TABLETS, 40 TABLETS
     Route: 048
     Dates: start: 20141205
  6. SULFASALAZINE [Concomitant]
     Active Substance: SULFASALAZINE
     Indication: Product used for unknown indication
     Dosage: 2 TABLETS OF 500 MG EVERY 12 HOURS; 50 TABLETS
     Route: 048
     Dates: start: 20120118

REACTIONS (1)
  - Tendon rupture [Recovered/Resolved]

NARRATIVE: CASE EVENT DATE: 20230707
